FAERS Safety Report 8080304-4 (Version None)
Quarter: 2012Q1

REPORT INFORMATION
  Report Type: 
  Country: None (occurrence: None)
  Receive Date: 20120130
  Receipt Date: 20120120
  Transmission Date: 20120608
  Serious: Yes (Other)
  Sender: FDA-Public Use
  Company Number: US-BAYER-201037660NA

PATIENT
  Age: 19 Year
  Sex: Female

DRUGS (3)
  1. YAZ [Suspect]
     Indication: MENORRHAGIA
  2. LOESTRIN 1.5/30 [Concomitant]
     Dosage: UNK
     Dates: start: 20070701, end: 20080901
  3. YAZ [Suspect]
     Indication: HEADACHE
     Dosage: UNK
     Route: 048
     Dates: start: 20080901, end: 20080924

REACTIONS (1)
  - CONVULSION [None]
